FAERS Safety Report 21234203 (Version 2)
Quarter: 2022Q3

REPORT INFORMATION
  Report Type: Spontaneous
  Country: AU (occurrence: AU)
  Receive Date: 20220819
  Receipt Date: 20220831
  Transmission Date: 20221026
  Serious: Yes (Hospitalization, Other)
  Sender: FDA-Public Use
  Company Number: AU-PFIZER INC-202201070641

PATIENT
  Age: 71 Year
  Sex: Female

DRUGS (3)
  1. VENLAFAXINE HYDROCHLORIDE [Suspect]
     Active Substance: VENLAFAXINE HYDROCHLORIDE
     Indication: Menopausal depression
     Dosage: 75 MG
     Dates: start: 2002
  2. VENLAFAXINE HYDROCHLORIDE [Suspect]
     Active Substance: VENLAFAXINE HYDROCHLORIDE
     Dosage: INCREASED TO 150MG AFTER THE KIDNEY FAILURE
  3. VENLAFAXINE HYDROCHLORIDE [Suspect]
     Active Substance: VENLAFAXINE HYDROCHLORIDE
     Dosage: UNK
     Dates: end: 2020

REACTIONS (8)
  - Renal disorder [Unknown]
  - Anti-neutrophil cytoplasmic antibody positive vasculitis [Unknown]
  - End stage renal disease [Not Recovered/Not Resolved]
  - Fall [Unknown]
  - Hip fracture [Unknown]
  - Mental disorder [Unknown]
  - Osteoporosis [Unknown]
  - Drug ineffective [Unknown]

NARRATIVE: CASE EVENT DATE: 20200101
